FAERS Safety Report 16391896 (Version 1)
Quarter: 2019Q2

REPORT INFORMATION
  Report Type: Spontaneous
  Country: US (occurrence: US)
  Receive Date: 20190605
  Receipt Date: 20190605
  Transmission Date: 20190711
  Serious: No
  Sender: FDA-Public Use
  Company Number: US-ROCHE-2238145

PATIENT

DRUGS (1)
  1. OCREVUS [Suspect]
     Active Substance: OCRELIZUMAB
     Indication: PRODUCT USED FOR UNKNOWN INDICATION
     Dosage: SECOND FULL DOSE
     Route: 065

REACTIONS (8)
  - Gait disturbance [Unknown]
  - Flushing [Unknown]
  - Headache [Unknown]
  - Wheezing [Unknown]
  - Fatigue [Unknown]
  - Pain [Unknown]
  - Oropharyngeal pain [Unknown]
  - Cough [Unknown]
